FAERS Safety Report 7636456-0 (Version None)
Quarter: 2011Q3

REPORT INFORMATION
  Report Type: 
  Country: None (occurrence: None)
  Receive Date: 20110719
  Receipt Date: 20110704
  Transmission Date: 20111222
  Serious: Yes (Hospitalization)
  Sender: FDA-Public Use
  Company Number: 2011MA008462

PATIENT
  Age: 67 Year
  Sex: Male

DRUGS (3)
  1. AMLODIPINE [Concomitant]
  2. FINASTERIDE [Suspect]
     Dosage: 5 MG;QD;PO
     Route: 048
     Dates: start: 20101228
  3. ALFUZOSIN HCL [Concomitant]

REACTIONS (1)
  - DEEP VEIN THROMBOSIS [None]
